FAERS Safety Report 6955339-2 (Version None)
Quarter: 2010Q3

REPORT INFORMATION
  Report Type: 
  Country: None (occurrence: None)
  Receive Date: 20100830
  Receipt Date: 20100825
  Transmission Date: 20110219
  Serious: Yes (Life-Threatening, Other)
  Sender: FDA-Public Use
  Company Number: BR-BRISTOL-MYERS SQUIBB COMPANY-15037393

PATIENT
  Age: 45 Year
  Sex: Female

DRUGS (16)
  1. REYATAZ [Suspect]
     Indication: HIV INFECTION
     Route: 065
     Dates: start: 20100218, end: 20100314
  2. STOCRIN [Suspect]
     Indication: HIV INFECTION
     Route: 065
     Dates: start: 20091019, end: 20100218
  3. COMBIVIR [Suspect]
     Indication: HIV INFECTION
     Dosage: 19-OCT-2009 TO 12-FEB-2010 AND FROM 12-FEB-2010 TO 18-FEB-2010 AND ALSO FROM 10FEB-18-FEB-2010-CONT
     Route: 065
     Dates: start: 20091019, end: 20100218
  4. EPIVIR [Suspect]
  5. RETROVIR [Suspect]
  6. HALOPERIDOL [Suspect]
     Indication: PSYCHOTIC DISORDER
     Route: 065
     Dates: start: 20100218
  7. PROMETHAZINE [Suspect]
     Indication: PARKINSON'S DISEASE
     Dosage: 18FEB10:14MAR (25D) 7APR10:CONT
     Route: 065
     Dates: start: 20100218
  8. DIAZEPAM [Suspect]
     Indication: IRRITABILITY
     Route: 065
     Dates: start: 20100212, end: 20100406
  9. DIAZEPAM [Suspect]
     Indication: INSOMNIA
     Route: 065
     Dates: start: 20100212, end: 20100406
  10. DIAZEPAM [Suspect]
     Indication: PSYCHOTIC DISORDER
     Route: 065
     Dates: start: 20100212, end: 20100406
  11. MEDROXYPROGESTERONE [Concomitant]
     Indication: CONTRACEPTION
     Dates: start: 20091019, end: 20091019
  12. METRONIDAZOLE [Concomitant]
     Indication: VAGINITIS BACTERIAL
     Dates: start: 20091019, end: 20091024
  13. DIPIRONE [Concomitant]
     Indication: PYREXIA
     Dosage: DISCONTINUED IN 04DEC09 AND RESTARTED ON 30DEC09 STARTED ON 3MAY10
     Dates: start: 20091201, end: 20100503
  14. DIPIRONE [Concomitant]
     Indication: ANALGESIC THERAPY
     Dosage: DISCONTINUED IN 04DEC09 AND RESTARTED ON 30DEC09 STARTED ON 3MAY10
     Dates: start: 20091201, end: 20100503
  15. BACITRACIN + NEOMYCIN SULFATE [Concomitant]
     Indication: SKIN DISORDER
     Dates: start: 20100126, end: 20100219
  16. CARBAMAZEPINE [Concomitant]
     Indication: MENTAL DISORDER
     Dates: start: 20100407

REACTIONS (2)
  - PSYCHOTIC DISORDER [None]
  - SOMNOLENCE [None]
